FAERS Safety Report 19315706 (Version 2)
Quarter: 2021Q2

REPORT INFORMATION
  Report Type: Spontaneous
  Country: TR (occurrence: TR)
  Receive Date: 20210528
  Receipt Date: 20210610
  Transmission Date: 20210717
  Serious: Yes (Hospitalization, Other)
  Sender: FDA-Public Use
  Company Number: TR-AMGEN-TURSP2021082113

PATIENT
  Age: 36 Year
  Sex: Male

DRUGS (5)
  1. VOLTARENE (DICLOFENAC SODIUM) [Concomitant]
     Active Substance: DICLOFENAC SODIUM
     Dosage: UNK, CYCLIC
  2. CORONAVAC [Suspect]
     Active Substance: INVESTIGATIONAL PRODUCT
     Indication: COVID-19 IMMUNISATION
     Dosage: 1ST DOSE, SINGLE DOSE
     Route: 065
     Dates: start: 20210329, end: 20210329
  3. LYRICA [Concomitant]
     Active Substance: PREGABALIN
     Indication: NEURALGIA
     Dosage: 300 MILLIGRAM, BID
     Dates: start: 2017
  4. ENBREL [Suspect]
     Active Substance: ETANERCEPT
     Indication: ANKYLOSING SPONDYLITIS
     Dosage: UNK UNK, QWK
     Route: 065
     Dates: end: 202105
  5. ENDOL [INDOMETACIN] [Concomitant]
     Dosage: UNK, CYCLIC

REACTIONS (12)
  - Urticaria [Recovering/Resolving]
  - Hypoaesthesia [Recovered/Resolved]
  - Tuberculosis [Unknown]
  - Inflammation [Recovering/Resolving]
  - Condition aggravated [Recovering/Resolving]
  - Pruritus [Recovering/Resolving]
  - COVID-19 [Unknown]
  - Flushing [Recovering/Resolving]
  - Blister [Recovering/Resolving]
  - Erythema [Recovering/Resolving]
  - Hypersensitivity [Recovering/Resolving]
  - Swelling [Recovering/Resolving]

NARRATIVE: CASE EVENT DATE: 202104
